FAERS Safety Report 6683039-5 (Version None)
Quarter: 2010Q2

REPORT INFORMATION
  Report Type: 
  Country: None (occurrence: None)
  Receive Date: 20100413
  Receipt Date: 20100329
  Transmission Date: 20101027
  Serious: Yes (Other)
  Sender: FDA-Public Use
  Company Number: 08-AUR-05087

PATIENT
  Age: 51 Year
  Sex: Male

DRUGS (14)
  1. FLUOXETINE [Suspect]
     Indication: DEPRESSION
     Dosage: 40 MG, ORAL
     Route: 048
     Dates: start: 20050210, end: 20080903
  2. DIHYDROCODEINE BITARTRATE INJ [Suspect]
  3. OXYCONTIN [Suspect]
     Indication: ARTHRALGIA
     Dosage: 80MG - BID - ORAL
     Route: 048
     Dates: start: 20061016
  4. OXYCONTIN [Suspect]
     Indication: GOUT
     Dosage: 80MG - BID - ORAL
     Route: 048
     Dates: start: 20061016
  5. OXYCONTIN [Suspect]
     Indication: OSTEOARTHRITIS
     Dosage: 80MG - BID - ORAL
     Route: 048
     Dates: start: 20061016
  6. OXYCONTIN [Suspect]
     Indication: SARCOIDOSIS
     Dosage: 80MG - BID - ORAL
     Route: 048
     Dates: start: 20061016
  7. OXYCODONE HCL [Suspect]
     Indication: PAIN
     Dosage: 5 (UNITS NOT SPECIFIED)- PRN - ORAL
     Route: 048
     Dates: start: 20061201
  8. ETORICOXIB [Concomitant]
  9. IBANDRONIC ACID [Concomitant]
  10. CALCICHEW [Concomitant]
  11. OMEPRAZOLE [Concomitant]
  12. PREDNISOLONE [Concomitant]
  13. ISPAGHULA [Concomitant]
  14. SENNA [Concomitant]

REACTIONS (5)
  - CONSTIPATION [None]
  - DRUG DEPENDENCE [None]
  - DRUG INEFFECTIVE [None]
  - DRUG INTERACTION [None]
  - HYPERHIDROSIS [None]
